FAERS Safety Report 5080866-5 (Version None)
Quarter: 2006Q3

REPORT INFORMATION
  Report Type: 
  Country: None (occurrence: None)
  Receive Date: 20060810
  Receipt Date: 20060721
  Transmission Date: 20061208
  Serious: Yes (Other)
  Sender: FDA-Public Use
  Company Number: UKO06000419

PATIENT
  Age: 47 Year
  Sex: Male

DRUGS (2)
  1. VICKS SINEX DECONGESTANT NASAL SPRAY(CAMPHOR 0.034 MG, EUCALYPTUS OIL [Suspect]
     Dosage: 1 APPLIC, EVENING, INTRANASAL
     Route: 045
     Dates: start: 20050101, end: 20050101
  2. VICKS SINEX DECONGESTANT NASAL SPRAY(CAMPHOR 0.034 MG, EUCALYPTUS OIL [Suspect]
     Dosage: 1 APPLIC, EVENING, INTRANASAL
     Route: 045
     Dates: start: 20060201, end: 20060201

REACTIONS (1)
  - CONVULSION [None]
